FAERS Safety Report 4616360-2 (Version None)
Quarter: 2005Q1

REPORT INFORMATION
  Report Type: 
  Country: None (occurrence: None)
  Receive Date: 20050321
  Receipt Date: 20050310
  Transmission Date: 20050727
  Serious: Yes (Hospitalization)
  Sender: FDA-Public Use
  Company Number: 2005-03-0887

PATIENT
  Age: 50 Year
  Sex: Male

DRUGS (2)
  1. PEG-INTRON [Suspect]
     Indication: HEPATITIS C
     Dates: end: 20050225
  2. PEG-INTRON [Suspect]

REACTIONS (3)
  - DELUSION [None]
  - HALLUCINATION [None]
  - PARANOIA [None]
